FAERS Safety Report 6984909-0 (Version None)
Quarter: 2010Q3

REPORT INFORMATION
  Report Type: 
  Country: None (occurrence: None)
  Receive Date: 20100915
  Receipt Date: 20100831
  Transmission Date: 20110219
  Serious: Yes (Other)
  Sender: FDA-Public Use
  Company Number: DE-SANOFI-AVENTIS-2010SA054890

PATIENT
  Age: 68 Year

DRUGS (2)
  1. CLEXANE [Suspect]
     Indication: ANTICOAGULANT THERAPY
     Route: 065
  2. PHENPROCOUMON [Concomitant]
     Indication: PRODUCT USED FOR UNKNOWN INDICATION

REACTIONS (2)
  - EMBOLISM ARTERIAL [None]
  - VASCULAR GRAFT OCCLUSION [None]
